FAERS Safety Report 16821626 (Version 2)
Quarter: 2019Q4

REPORT INFORMATION
  Report Type: Spontaneous
  Country: US (occurrence: US)
  Receive Date: 20190918
  Receipt Date: 20191102
  Transmission Date: 20200122
  Serious: Yes (Hospitalization, Other)
  Sender: FDA-Public Use
  Company Number: US-DRREDDYS-USA/USA/19/0114221

PATIENT
  Age: 37 Year
  Sex: Female

DRUGS (4)
  1. KETOROLAC TROMETHAMINE. [Concomitant]
     Active Substance: KETOROLAC TROMETHAMINE
     Indication: PELVIC CONGESTION
     Route: 042
  2. IBUPROFEN. [Suspect]
     Active Substance: IBUPROFEN
     Dosage: SHE DECREASED HER IBUPROFEN INTAKE TO 2 DOSES PER DAY WITH ACETAMINOPHEN
  3. IBUPROFEN. [Suspect]
     Active Substance: IBUPROFEN
     Indication: PELVIC CONGESTION
     Dosage: SHE WAS DISCHARGED WITH IBUPROFEN 600 MG EVERY 6 HRS AS NEEDED. SHE TOOK IBUPROFEN THREE TIMES PER D
  4. PARACETAMOL [Concomitant]
     Active Substance: ACETAMINOPHEN
     Indication: PELVIC CONGESTION

REACTIONS (5)
  - Acute kidney injury [Recovered/Resolved]
  - Vasoconstriction [Recovered/Resolved]
  - Renal ischaemia [Recovered/Resolved]
  - Decreased appetite [Unknown]
  - Abdominal pain upper [Unknown]
